FAERS Safety Report 21529144 (Version 14)
Quarter: 2023Q2

REPORT INFORMATION
  Report Type: Report from Study
  Country: US (occurrence: US)
  Receive Date: 20221031
  Receipt Date: 20230518
  Transmission Date: 20230722
  Serious: Yes (Other)
  Sender: FDA-Public Use
  Company Number: US-JAZZ-2022-US-032072

PATIENT
  Sex: Female

DRUGS (14)
  1. XYREM [Suspect]
     Active Substance: SODIUM OXYBATE
     Indication: Narcolepsy
     Dosage: 3 GRAM
     Dates: start: 20221005
  2. XYREM [Suspect]
     Active Substance: SODIUM OXYBATE
     Indication: Cataplexy
     Dosage: 3.75 GRAM, BID
  3. XYREM [Suspect]
     Active Substance: SODIUM OXYBATE
     Indication: Somnolence
     Dosage: 4.5 GRAM
  4. XYREM [Suspect]
     Active Substance: SODIUM OXYBATE
     Dosage: 4.5 GRAM, BID
  5. XYREM [Suspect]
     Active Substance: SODIUM OXYBATE
     Dosage: 3 GRAM
  6. LIDOCAINE [Suspect]
     Active Substance: LIDOCAINE
     Indication: Scoliosis
     Dosage: UNK
  7. LIDOCAINE [Suspect]
     Active Substance: LIDOCAINE
     Dosage: UNK
  8. GABAPENTIN [Suspect]
     Active Substance: GABAPENTIN
     Indication: Product used for unknown indication
     Dosage: 800 MILLIGRAM, TID (FOR 6 YEARS)
  9. GABAPENTIN [Suspect]
     Active Substance: GABAPENTIN
     Dosage: 400 MILLIGRAM, TID
  10. GABAPENTIN [Suspect]
     Active Substance: GABAPENTIN
     Dosage: 100 MILLIGRAM, TID (REDUCTION EVERY FOUR DAYS)
  11. FAMOTIDINE [Concomitant]
     Active Substance: FAMOTIDINE
     Indication: Product used for unknown indication
     Dosage: UNK
     Dates: start: 20130101
  12. LORATADINE [Concomitant]
     Active Substance: LORATADINE
     Indication: Product used for unknown indication
     Dosage: UNK
     Dates: start: 20230101
  13. MONTELUKAST SODIUM [Concomitant]
     Active Substance: MONTELUKAST SODIUM
     Indication: Product used for unknown indication
     Dosage: UNK
     Dates: start: 20230101
  14. MOMETASONE FUROATE [Concomitant]
     Active Substance: MOMETASONE FUROATE
     Indication: Product used for unknown indication
     Dosage: UNK
     Dates: start: 20230101

REACTIONS (22)
  - Neuropathy peripheral [Unknown]
  - Weight decreased [Unknown]
  - Borderline personality disorder [Unknown]
  - Mood altered [Unknown]
  - Night sweats [Unknown]
  - Withdrawal syndrome [Unknown]
  - Chest discomfort [Unknown]
  - Illness [Unknown]
  - Dyspnoea [Unknown]
  - Dehydration [Unknown]
  - Nausea [Unknown]
  - Somnolence [Unknown]
  - Insomnia [Unknown]
  - Dizziness [Unknown]
  - Vertigo [Unknown]
  - Anxiety [Unknown]
  - Urticaria [Unknown]
  - Hangover [Unknown]
  - Pre-existing condition improved [Unknown]
  - Drug titration error [Unknown]
  - Product dose omission issue [Unknown]
  - Product quality issue [Unknown]
